FAERS Safety Report 19711532 (Version 1)
Quarter: 2021Q3

REPORT INFORMATION
  Report Type: Spontaneous
  Country: RU (occurrence: RU)
  Receive Date: 20210816
  Receipt Date: 20210816
  Transmission Date: 20211014
  Serious: Yes (Hospitalization)
  Sender: FDA-Public Use
  Company Number: RU-ASTRAZENECA-2021A682896

PATIENT
  Age: 61 Year
  Sex: Male
  Weight: 98 kg

DRUGS (12)
  1. CALCIUM CARBONATE\CALCIUM LACTATE GLUCONATE [Suspect]
     Active Substance: CALCIUM CARBONATE\CALCIUM LACTATE GLUCONATE
     Indication: PROPHYLAXIS
     Dosage: 1000 MG, DAILY (UNTIL THE TIME OF REPORTING)
     Route: 065
     Dates: start: 20180315
  2. METHOTREXATE. [Suspect]
     Active Substance: METHOTREXATE
     Indication: PSORIATIC ARTHROPATHY
     Dosage: 20 MG, EVERY 20 WEEK, (WED AT 08:00 AM ? 2 TAB., AT 08:00 PM ? 2 TAB., THU AT 08:00 AM ? 2 TAB. A...
     Route: 065
     Dates: start: 20180315
  3. NETAKIMAB. [Suspect]
     Active Substance: NETAKIMAB
     Indication: PSORIATIC ARTHROPATHY
     Dosage: 120 MG, EVERY 4 WEEK
     Route: 058
     Dates: start: 20210406, end: 20210406
  4. VITAMIN D3 [Suspect]
     Active Substance: CHOLECALCIFEROL
     Indication: PROPHYLAXIS
     Dosage: 400 IU, DAILY (UNTIL THE TIME OF REPORTING)
     Route: 065
     Dates: start: 20180315
  5. METHOTREXATE. [Suspect]
     Active Substance: METHOTREXATE
     Indication: PSORIATIC ARTHROPATHY
     Dosage: 8 MG, DAILY,
     Route: 048
     Dates: start: 20180315
  6. METHYLPREDNISOLONE. [Suspect]
     Active Substance: METHYLPREDNISOLONE
     Indication: PROPHYLAXIS
     Dosage: 8 MG, DAILY,
     Route: 065
     Dates: start: 20210406, end: 20210406
  7. VITAMIN D3 [Suspect]
     Active Substance: CHOLECALCIFEROL
     Indication: ADRENOCORTICAL STEROID THERAPY
     Dosage: 400 IU, DAILY (UNTIL THE TIME OF REPORTING)
     Route: 065
     Dates: start: 20180315
  8. OMEPRAZOLE. [Suspect]
     Active Substance: OMEPRAZOLE
     Indication: ADRENOCORTICAL STEROID THERAPY
     Dosage: 20 MG, DAILY, (FOR THE NIGHT, UNTIL THE TIME OF REPORTING)
     Route: 048
     Dates: start: 20180315
  9. FOLIC ACID. [Suspect]
     Active Substance: FOLIC ACID
     Indication: PRODUCT USED FOR UNKNOWN INDICATION
     Dosage: 1 MG, DAILY, (ON MON, TUE, FRI, SAT 1 MG 1 TID, UNTIL THE TIME OF REPORTING)
     Route: 065
     Dates: start: 20180315
  10. CALCIUM CARBONATE\CALCIUM LACTATE GLUCONATE [Suspect]
     Active Substance: CALCIUM CARBONATE\CALCIUM LACTATE GLUCONATE
     Indication: ADRENOCORTICAL STEROID THERAPY
     Dosage: 1000 MG, DAILY (UNTIL THE TIME OF REPORTING)
     Route: 065
     Dates: start: 20180315
  11. ARCOXIA [Suspect]
     Active Substance: ETORICOXIB
     Indication: PSORIATIC ARTHROPATHY
     Dosage: 90 MG, DAILY (AT 06:00 PM, UNTIL THE TIME OF REPORTING)
     Route: 065
     Dates: start: 20180315
  12. OMEPRAZOLE. [Suspect]
     Active Substance: OMEPRAZOLE
     Indication: PROPHYLAXIS
     Dosage: 20 MG, DAILY, (FOR THE NIGHT, UNTIL THE TIME OF REPORTING)
     Route: 048
     Dates: start: 20180315

REACTIONS (5)
  - Myasthenic syndrome [Recovering/Resolving]
  - Product use in unapproved indication [Unknown]
  - Speech disorder [Recovering/Resolving]
  - Dyspnoea [Recovering/Resolving]
  - Cerebral ischaemia [Recovering/Resolving]

NARRATIVE: CASE EVENT DATE: 20210426
